FAERS Safety Report 4502775-X (Version None)
Quarter: 2004Q4

REPORT INFORMATION
  Report Type: 
  Country: None (occurrence: None)
  Receive Date: 20041116
  Receipt Date: 20041102
  Transmission Date: 20050328
  Serious: Yes (Hospitalization)
  Sender: FDA-Public Use
  Company Number: US-MERCK-0411USA00469

PATIENT
  Age: 94 Year
  Sex: Female

DRUGS (5)
  1. DILANTIN [Concomitant]
     Route: 065
  2. URECHOLINE [Concomitant]
     Route: 048
  3. FAMVIR [Concomitant]
     Route: 065
  4. VIOXX [Suspect]
     Route: 048
     Dates: end: 20040205
  5. TOPROL-XL [Concomitant]
     Route: 065

REACTIONS (2)
  - PUNCTATE KERATITIS [None]
  - SUBDURAL HAEMATOMA [None]
